FAERS Safety Report 9246623 (Version 3)
Quarter: 2014Q3

REPORT INFORMATION
  Report Type: Report from Study
  Country: BR (occurrence: BR)
  Receive Date: 20130422
  Receipt Date: 20140926
  Transmission Date: 20150326
  Serious: Yes (Death, Life-Threatening, Hospitalization, Other)
  Sender: FDA-Public Use
  Company Number: BR-ELI_LILLY_AND_COMPANY-BR201304004024

PATIENT
  Age: 53 Year
  Sex: Female
  Weight: 71 kg

DRUGS (10)
  1. TERIPARATIDE [Suspect]
     Active Substance: TERIPARATIDE
     Indication: OSTEOPOROSIS
     Dosage: 20 UG, QD
     Route: 058
     Dates: start: 2013
  2. CEFTRIAXONA [Concomitant]
     Active Substance: CEFTRIAXONE
     Dosage: UNK, UNKNOWN
     Route: 065
  3. AMOXICILLIN. [Concomitant]
     Active Substance: AMOXICILLIN
     Dosage: UNK, UNKNOWN
     Route: 065
     Dates: start: 201304
  4. TERIPARATIDE [Suspect]
     Active Substance: TERIPARATIDE
     Dosage: 20 UG, QD
     Route: 058
  5. OXYGEN. [Concomitant]
     Active Substance: OXYGEN
     Dosage: UNK, UNKNOWN
     Route: 065
  6. ASMATEC [Concomitant]
     Dosage: UNK, UNKNOWN
     Route: 065
  7. FENOTEROL [Concomitant]
     Active Substance: FENOTEROL
     Dosage: UNK, UNKNOWN
     Route: 065
  8. CARDIOASPIRINA [Concomitant]
     Active Substance: ASPIRIN
     Dosage: UNK, UNKNOWN
     Route: 065
  9. FUROSEMIDA                         /00032601/ [Concomitant]
     Active Substance: FUROSEMIDE
     Dosage: UNK, UNKNOWN
     Route: 065
  10. CAPTOPRIL. [Concomitant]
     Active Substance: CAPTOPRIL
     Indication: BLOOD PRESSURE
     Dosage: UNK, UNKNOWN
     Route: 065

REACTIONS (16)
  - Lung disorder [Not Recovered/Not Resolved]
  - Pulmonary oedema [Not Recovered/Not Resolved]
  - Atrioventricular block [Unknown]
  - Obstructive airways disorder [Unknown]
  - Cardiovascular disorder [Unknown]
  - Cardiac arrest [Unknown]
  - Cardiomegaly [Not Recovered/Not Resolved]
  - Hepatomegaly [Unknown]
  - Swelling [Not Recovered/Not Resolved]
  - Arthropathy [Unknown]
  - Death [Fatal]
  - Emphysema [Not Recovered/Not Resolved]
  - Malaise [Unknown]
  - Hypertension [Unknown]
  - Urinary tract infection [Recovering/Resolving]
  - Peripheral swelling [Not Recovered/Not Resolved]

NARRATIVE: CASE EVENT DATE: 201304
